FAERS Safety Report 17075529 (Version 3)
Quarter: 2019Q4

REPORT INFORMATION
  Report Type: Spontaneous
  Country: US (occurrence: US)
  Receive Date: 20191126
  Receipt Date: 20191213
  Transmission Date: 20200122
  Serious: No
  Sender: FDA-Public Use
  Company Number: US-PFIZER INC-2019506011

PATIENT
  Age: 73 Year
  Sex: Female
  Weight: 74.84 kg

DRUGS (2)
  1. TIKOSYN [Suspect]
     Active Substance: DOFETILIDE
     Indication: ATRIAL FIBRILLATION
     Dosage: 250 MG, 2X/DAY (ONCE IN A MORNING, ONCE AT NIGHT)
  2. METOPROLOL. [Suspect]
     Active Substance: METOPROLOL
     Indication: CARDIAC DISORDER
     Dosage: 50 MG, 2X/DAY (ONCE IN MORNING AND ONE AT NIGHT)

REACTIONS (1)
  - Visual impairment [Unknown]
